FAERS Safety Report 14769125 (Version 1)
Quarter: 2018Q2

REPORT INFORMATION
  Report Type: Spontaneous
  Country: GB (occurrence: GB)
  Receive Date: 20180417
  Receipt Date: 20180417
  Transmission Date: 20180711
  Serious: Yes (Death)
  Sender: FDA-Public Use
  Company Number: GB-VIRTUS PHARMACEUTICALS, LLC-2018VTS00055

PATIENT

DRUGS (1)
  1. DIAZEPAM. [Suspect]
     Active Substance: DIAZEPAM
     Route: 048

REACTIONS (3)
  - Death [Fatal]
  - Intentional overdose [Fatal]
  - Completed suicide [Fatal]
